FAERS Safety Report 6375165-5 (Version None)
Quarter: 2009Q3

REPORT INFORMATION
  Report Type: 
  Country: None (occurrence: None)
  Receive Date: 20090924
  Receipt Date: 20090915
  Transmission Date: 20100115
  Serious: Yes (Hospitalization)
  Sender: FDA-Public Use
  Company Number: BR-ASTRAZENECA-2009SE13517

PATIENT
  Age: 25 Year
  Sex: Male
  Weight: 110 kg

DRUGS (8)
  1. SEROQUEL [Suspect]
     Indication: BIPOLAR I DISORDER
     Route: 048
     Dates: start: 20090401, end: 20090830
  2. SEROQUEL [Suspect]
     Indication: SCHIZOAFFECTIVE DISORDER
     Route: 048
     Dates: start: 20090401, end: 20090830
  3. SEROQUEL [Suspect]
     Route: 048
     Dates: start: 20090831
  4. SEROQUEL [Suspect]
     Route: 048
     Dates: start: 20090831
  5. DEPAKOTE ER [Concomitant]
     Indication: BIPOLAR I DISORDER
     Dosage: THREE TIMES A DAY
     Route: 048
     Dates: start: 20090401
  6. DEPAKOTE ER [Concomitant]
     Indication: SCHIZOAFFECTIVE DISORDER
     Dosage: THREE TIMES A DAY
     Route: 048
     Dates: start: 20090401
  7. LITHIUM [Concomitant]
     Indication: BIPOLAR I DISORDER
     Dosage: FOUR TIMES A DAY
     Route: 048
  8. LITHIUM [Concomitant]
     Indication: SCHIZOAFFECTIVE DISORDER
     Dosage: FOUR TIMES A DAY
     Route: 048

REACTIONS (1)
  - PSYCHIATRIC DECOMPENSATION [None]
